FAERS Safety Report 6738990-4 (Version None)
Quarter: 2010Q2

REPORT INFORMATION
  Report Type: 
  Country: None (occurrence: None)
  Receive Date: 20100524
  Receipt Date: 20100524
  Transmission Date: 20101027
  Serious: Yes (Life-Threatening)
  Sender: FDA-Public Use
  Company Number: None

PATIENT
  Age: 82 Year
  Sex: Male

DRUGS (2)
  1. ABCIXIMAB [Suspect]
     Indication: CORONARY ARTERIAL STENT INSERTION
     Dosage: 0.125 MCG PER HOUR IV
     Route: 042
     Dates: start: 20100419, end: 20100420
  2. CLOPIDOGREL [Suspect]
     Indication: CORONARY ARTERIAL STENT INSERTION
     Dosage: 75 MG EVERY DAY PO
     Route: 048
     Dates: start: 20100419, end: 20100420

REACTIONS (16)
  - ANGINA PECTORIS [None]
  - CONVULSION [None]
  - DIARRHOEA [None]
  - DIZZINESS [None]
  - DYSPNOEA [None]
  - ELECTROCARDIOGRAM CHANGE [None]
  - FALL [None]
  - GASTRIC HAEMORRHAGE [None]
  - GASTROINTESTINAL ARTERIOVENOUS MALFORMATION [None]
  - HAEMATOCRIT DECREASED [None]
  - HAEMOGLOBIN DECREASED [None]
  - HAEMORRHAGE [None]
  - HYPERHIDROSIS [None]
  - HYPOTENSION [None]
  - SYNCOPE [None]
  - TACHYPNOEA [None]
